FAERS Safety Report 4564751-0 (Version None)
Quarter: 2005Q1

REPORT INFORMATION
  Report Type: 
  Country: None (occurrence: None)
  Receive Date: 20050128
  Receipt Date: 20040819
  Transmission Date: 20050727
  Serious: Yes (Hospitalization)
  Sender: FDA-Public Use
  Company Number: DE-ABBOTT-04P-062-0271160-00

PATIENT
  Age: 75 Year
  Sex: Female

DRUGS (2)
  1. HUMIRA [Suspect]
     Indication: DRUG USE FOR UNKNOWN INDICATION
     Route: 058
     Dates: start: 20040401, end: 20040501
  2. HUMIRA [Suspect]
     Route: 058
     Dates: start: 20040601

REACTIONS (1)
  - SHOULDER ARTHROPLASTY [None]
